FAERS Safety Report 8696710 (Version 2)
Quarter: 2014Q3

REPORT INFORMATION
  Report Type: Spontaneous
  Country: US (occurrence: US)
  Receive Date: 20120801
  Receipt Date: 20140804
  Transmission Date: 20150326
  Serious: Yes (Hospitalization, Disabling, Other)
  Sender: FDA-Public Use
  Company Number: US-009507513-1207USA008794

PATIENT
  Age: 28 Year
  Sex: Female

DRUGS (1)
  1. NUVARING [Suspect]
     Active Substance: ETHINYL ESTRADIOL\ETONOGESTREL
     Indication: CONTRACEPTION
     Dosage: UNK
     Route: 067
     Dates: start: 201005, end: 20100713

REACTIONS (20)
  - Pneumonia [Unknown]
  - Ovarian cystectomy [Unknown]
  - Chest pain [Unknown]
  - Meniscus injury [Unknown]
  - Gastrooesophageal reflux disease [Unknown]
  - Night sweats [Unknown]
  - Decreased appetite [Unknown]
  - Pain in extremity [Unknown]
  - Pulmonary embolism [Not Recovered/Not Resolved]
  - Withdrawal bleed [Recovered/Resolved]
  - Obesity [Unknown]
  - Feeling of body temperature change [Unknown]
  - Nausea [Unknown]
  - Musculoskeletal discomfort [Unknown]
  - Reflux laryngitis [Unknown]
  - Hypoaesthesia [Unknown]
  - Fatigue [Unknown]
  - Insomnia [Unknown]
  - Pollakiuria [Unknown]
  - Adnexal torsion [Unknown]

NARRATIVE: CASE EVENT DATE: 201005
